FAERS Safety Report 6682612-8 (Version None)
Quarter: 2010Q2

REPORT INFORMATION
  Report Type: 
  Country: None (occurrence: None)
  Receive Date: 20100414
  Receipt Date: 20100414
  Transmission Date: 20101027
  Serious: Yes (Life-Threatening, Hospitalization)
  Sender: FDA-Public Use
  Company Number: None

PATIENT
  Age: 39 Year
  Sex: Male
  Weight: 86 kg

DRUGS (1)
  1. PHENDIMETRAZINE TARTRATE [Suspect]
     Indication: DECREASED APPETITE
     Dosage: 1 TAB TID PO
     Route: 048
     Dates: start: 20090901, end: 20100402

REACTIONS (1)
  - CARDIAC ARREST [None]
